FAERS Safety Report 24284561 (Version 1)
Quarter: 2024Q3

REPORT INFORMATION
  Report Type: Spontaneous
  Country: IN (occurrence: IN)
  Receive Date: 20240905
  Receipt Date: 20240905
  Transmission Date: 20241017
  Serious: Yes (Death)
  Sender: SANDOZ
  Company Number: IN-002147023-NVSC2023IN281091

PATIENT
  Age: 83 Year
  Sex: Male

DRUGS (2)
  1. EXELON [Suspect]
     Active Substance: RIVASTIGMINE TARTRATE
     Indication: Product used for unknown indication
     Dosage: UNK (5)
     Route: 065
  2. EXELON [Suspect]
     Active Substance: RIVASTIGMINE TARTRATE
     Dosage: UNK
     Route: 065

REACTIONS (1)
  - Death [Fatal]

NARRATIVE: CASE EVENT DATE: 20231227
